FAERS Safety Report 7509044-4 (Version None)
Quarter: 2011Q2

REPORT INFORMATION
  Report Type: 
  Country: None (occurrence: None)
  Receive Date: 20110527
  Receipt Date: 20110523
  Transmission Date: 20111010
  Serious: Yes (Hospitalization, Other)
  Sender: FDA-Public Use
  Company Number: US-PFIZER INC-2011032273

PATIENT
  Sex: Male

DRUGS (5)
  1. CHANTIX [Suspect]
     Indication: SMOKING CESSATION THERAPY
     Dosage: STARTER PACK
     Dates: start: 20080407, end: 20080601
  2. CELEXA [Concomitant]
     Indication: DEPRESSION
     Dosage: UNK
     Dates: start: 20080101
  3. XANAX [Concomitant]
     Indication: ANXIETY
     Dosage: UNK
     Dates: start: 20070101, end: 20110101
  4. GABAPENTIN [Concomitant]
     Indication: CONVULSION
     Dosage: UNK
     Dates: start: 20080101
  5. KLONOPIN [Concomitant]
     Indication: ANXIETY
     Dosage: UNK
     Dates: start: 20080101, end: 20110101

REACTIONS (10)
  - AFFECTIVE DISORDER [None]
  - ANXIETY [None]
  - CONVULSION [None]
  - PERSONALITY DISORDER [None]
  - ANGER [None]
  - DEPRESSION [None]
  - AGGRESSION [None]
  - HALLUCINATION, VISUAL [None]
  - SUICIDAL IDEATION [None]
  - HALLUCINATION, AUDITORY [None]
